FAERS Safety Report 4370252-5 (Version None)
Quarter: 2004Q2

REPORT INFORMATION
  Report Type: 
  Country: None (occurrence: None)
  Receive Date: 20040603
  Receipt Date: 20040310
  Transmission Date: 20050107
  Serious: Yes (Other)
  Sender: FDA-Public Use
  Company Number: US-BRISTOL-MYERS SQUIBB COMPANY-12544904

PATIENT
  Age: 13 Year
  Sex: Female

DRUGS (3)
  1. ABILIFY [Suspect]
     Indication: BIPOLAR I DISORDER
     Route: 048
     Dates: start: 20031101, end: 20040301
  2. TOPAMAX [Concomitant]
  3. LAMICTAL [Concomitant]

REACTIONS (4)
  - CHROMATOPSIA [None]
  - DIZZINESS [None]
  - TACHYCARDIA [None]
  - VISUAL DISTURBANCE [None]
